FAERS Safety Report 6355867-7 (Version None)
Quarter: 2009Q3

REPORT INFORMATION
  Report Type: 
  Country: None (occurrence: None)
  Receive Date: 20090910
  Receipt Date: 20090910
  Transmission Date: 20100115
  Serious: Yes (Other)
  Sender: FDA-Public Use
  Company Number: None

PATIENT
  Age: 10 Year
  Sex: Male
  Weight: 34.927 kg

DRUGS (1)
  1. TARGET SALINE NASAL SPRAY MADE BY PERRIGO [Suspect]
     Indication: MULTIPLE ALLERGIES
     Dosage: 2 SPRAYS TWICE A DAY
     Dates: start: 20090609, end: 20090818

REACTIONS (6)
  - ABDOMINAL DISCOMFORT [None]
  - OROPHARYNGEAL PAIN [None]
  - PRODUCT ODOUR ABNORMAL [None]
  - RASH [None]
  - SINUSITIS [None]
  - URTICARIA [None]
